FAERS Safety Report 5900812-9 (Version None)
Quarter: 2008Q3

REPORT INFORMATION
  Report Type: 
  Country: None (occurrence: None)
  Receive Date: 20080929
  Receipt Date: 20080916
  Transmission Date: 20090109
  Serious: Yes (Other)
  Sender: FDA-Public Use
  Company Number: US-JNJFOC-20080605729

PATIENT
  Sex: Female
  Weight: 102.97 kg

DRUGS (3)
  1. IBUPROFEN [Suspect]
     Indication: OSTEOARTHRITIS
  2. PERCOCET [Concomitant]
  3. OXYCONTIN [Concomitant]

REACTIONS (3)
  - ABDOMINAL PAIN [None]
  - FIBROMYALGIA [None]
  - ULCER [None]
